FAERS Safety Report 7701228-5 (Version None)
Quarter: 2011Q3

REPORT INFORMATION
  Report Type: 
  Country: None (occurrence: None)
  Receive Date: 20110822
  Receipt Date: 20110815
  Transmission Date: 20111222
  Serious: Yes (Other)
  Sender: FDA-Public Use
  Company Number: US-GLAXOSMITHKLINE-A0933873A

PATIENT
  Age: 52 Year
  Sex: Female

DRUGS (3)
  1. NEBULIZER [Concomitant]
  2. ADVAIR DISKUS 100/50 [Suspect]
     Indication: ASTHMA
     Dosage: 1PUFF PER DAY
     Route: 055
     Dates: start: 20050101
  3. PROAIR HFA [Concomitant]

REACTIONS (5)
  - LUNG DISORDER [None]
  - DYSPNOEA [None]
  - PRODUCT QUALITY ISSUE [None]
  - MALAISE [None]
  - PNEUMONITIS [None]
